FAERS Safety Report 25069248 (Version 1)
Quarter: 2025Q1

REPORT INFORMATION
  Report Type: Spontaneous
  Country: DE (occurrence: DE)
  Receive Date: 20250312
  Receipt Date: 20250312
  Transmission Date: 20250409
  Serious: Yes (Other)
  Sender: NOVARTIS
  Company Number: DE-STADA-01359950

PATIENT
  Age: 8 Year
  Sex: Male

DRUGS (16)
  1. OXCARBAZEPINE [Suspect]
     Active Substance: OXCARBAZEPINE
     Indication: Partial seizures
     Route: 065
  2. CARBAMAZEPINE [Suspect]
     Active Substance: CARBAMAZEPINE
     Indication: Partial seizures
     Route: 065
  3. VALPROATE [Suspect]
     Active Substance: VALPROIC ACID
     Indication: Partial seizures
     Route: 065
  4. LEVETIRACETAM [Suspect]
     Active Substance: LEVETIRACETAM
     Indication: Partial seizures
     Route: 065
  5. LAMOTRIGINE [Suspect]
     Active Substance: LAMOTRIGINE
     Indication: Partial seizures
     Route: 065
  6. LACOSAMIDE [Suspect]
     Active Substance: LACOSAMIDE
     Indication: Partial seizures
     Route: 065
  7. PHENOBARBITAL [Suspect]
     Active Substance: PHENOBARBITAL
     Indication: Partial seizures
     Route: 065
  8. TOPIRAMATE [Suspect]
     Active Substance: TOPIRAMATE
     Indication: Partial seizures
     Route: 065
  9. ZONISAMIDE [Suspect]
     Active Substance: ZONISAMIDE
     Indication: Partial seizures
     Route: 065
  10. PHENYTOIN [Suspect]
     Active Substance: PHENYTOIN
     Indication: Partial seizures
     Route: 065
  11. PHENOBARBITAL [Suspect]
     Active Substance: PHENOBARBITAL
     Indication: Partial seizures
     Route: 065
  12. CENOBAMATE [Suspect]
     Active Substance: CENOBAMATE
     Indication: Partial seizures
     Dosage: 100 MG, QD
     Route: 065
  13. CENOBAMATE [Suspect]
     Active Substance: CENOBAMATE
     Indication: Partial seizures
     Dosage: 200 MG, QD
     Route: 065
  14. CENOBAMATE [Suspect]
     Active Substance: CENOBAMATE
     Indication: Partial seizures
     Dosage: 300 MG, QD
     Route: 065
  15. TACROLIMUS [Concomitant]
     Active Substance: TACROLIMUS
     Indication: Partial seizures
     Route: 065
  16. Amytal [Concomitant]
     Indication: Wada test
     Route: 065

REACTIONS (8)
  - Ataxia [Unknown]
  - Vision blurred [Unknown]
  - Diplopia [Unknown]
  - Dysarthria [Unknown]
  - Drug ineffective [Unknown]
  - Rebound effect [Recovering/Resolving]
  - Epilepsy [Recovering/Resolving]
  - Sedation [Unknown]
